FAERS Safety Report 8552281-0 (Version None)
Quarter: 2012Q3

REPORT INFORMATION
  Report Type: 
  Country: None (occurrence: None)
  Receive Date: 20120723
  Receipt Date: 20120723
  Transmission Date: 20120928
  Serious: Yes (Hospitalization)
  Sender: FDA-Public Use
  Company Number: None

PATIENT
  Sex: Female
  Weight: 70.3075 kg

DRUGS (1)
  1. MIRENA [Suspect]
     Dates: start: 20070721, end: 20120719

REACTIONS (9)
  - WEIGHT INCREASED [None]
  - MOOD ALTERED [None]
  - DEPRESSION [None]
  - VOMITING [None]
  - GALLBLADDER DISORDER [None]
  - NAUSEA [None]
  - ADNEXA UTERI PAIN [None]
  - FEELING ABNORMAL [None]
  - AMNESIA [None]
